FAERS Safety Report 8974595 (Version 3)
Quarter: 2012Q4

REPORT INFORMATION
  Report Type: 
  Country: JP (occurrence: JP)
  Receive Date: 20121219
  Receipt Date: 20121229
  Transmission Date: 20130627
  Serious: Yes (Hospitalization)
  Sender: FDA-Public Use
  Company Number: JP-009507513-1212JPN005120

PATIENT
  Age: 63 Year
  Sex: Female
  Weight: 55 kg

DRUGS (8)
  1. PEGINTRON [Suspect]
     Indication: CHRONIC HEPATITIS C
     Dosage: 1.5 Microgram per kilogram, qw
     Route: 058
     Dates: start: 20121001
  2. REBETOL [Suspect]
     Indication: CHRONIC HEPATITIS C
     Dosage: 600 mg, qd
     Route: 048
     Dates: start: 20121001, end: 20121029
  3. REBETOL [Suspect]
     Dosage: UNK
     Route: 048
     Dates: start: 20121112
  4. TELAVIC [Suspect]
     Indication: CHRONIC HEPATITIS C
     Dosage: 1500 mg, qd
     Route: 048
     Dates: start: 20121001, end: 20121029
  5. TELAVIC [Suspect]
     Dosage: UNK
     Route: 048
     Dates: start: 20121119
  6. RENIVACE [Concomitant]
     Dosage: Formulation: POR 5 mg, qd
     Route: 048
  7. AMLODIN (AMLODIPINE BESYLATE) [Concomitant]
     Dosage: Formulation: POR,5 mg, qd
     Route: 048
  8. ZYLORIC [Concomitant]
     Dosage: Formulation: POR, 200 mg, qd
     Route: 048
     Dates: start: 20121004, end: 20121030

REACTIONS (1)
  - Pancreatitis acute [Recovered/Resolved]
